FAERS Safety Report 10305109 (Version 1)
Quarter: 2014Q3

REPORT INFORMATION
  Report Type: Spontaneous
  Country: GB (occurrence: GB)
  Receive Date: 20140715
  Receipt Date: 20140715
  Transmission Date: 20150326
  Serious: Yes (Disabling)
  Sender: FDA-Public Use
  Company Number: GB-MYLANLABS-2014S1015623

PATIENT
  Age: 48 Year
  Sex: Male

DRUGS (16)
  1. HYPROMELLOSE [Concomitant]
     Active Substance: HYPROMELLOSES
     Dosage: USE ONE DROP FOR DRY EYES WHEN REQUIRED.
  2. DIFFLAM [Concomitant]
     Active Substance: BENZYDAMINE HYDROCHLORIDE
     Dosage: RINSE TWICE DAILY
  3. ZINC [Concomitant]
     Active Substance: ZINC\ZINC CHLORIDE
  4. LAXIDO /07474401/ [Concomitant]
     Dosage: USE AS DIRECTED.
  5. SUMATRIPTAN [Concomitant]
     Active Substance: SUMATRIPTAN
     Dosage: TAKE ONE AS DIRECTED.
  6. IBANDRONIC ACID [Concomitant]
     Active Substance: IBANDRONIC ACID
     Dosage: USE AS DIRECTED.
  7. ORAMORPH SR SUSTAINED RELEASE [Concomitant]
     Active Substance: MORPHINE SULFATE
     Indication: PAIN
     Dosage: 10MG/5ML ORAL SOLUTION. TAKE 2.5ML TO 5ML WHEN REQUIRED FOR PAIN.
  8. DIAZEPAM. [Concomitant]
     Active Substance: DIAZEPAM
     Dosage: TAKE ONE AS DIRECTED WHEN REQUIRED.
  9. BIOTENE DRY MOUTH [Concomitant]
     Dosage: USE AS DIRECTED.
  10. OMEPRAZOLE. [Concomitant]
     Active Substance: OMEPRAZOLE
  11. CALCICHEW D3 [Concomitant]
     Active Substance: CALCIUM\CHOLECALCIFEROL
  12. BACLOFEN. [Suspect]
     Active Substance: BACLOFEN
     Indication: MUSCLE SPASTICITY
     Route: 048
     Dates: start: 20140612, end: 20140613
  13. LACRI-LUBE [Concomitant]
     Dosage: USE AS DIRECTED.
     Route: 047
  14. COCODAMOL [Concomitant]
     Active Substance: ACETAMINOPHEN\CODEINE PHOSPHATE
     Dosage: 30/500. TAKE TWO FOUR TIMES A DAY WHEN REQUIRED.
  15. PREGABALIN. [Concomitant]
     Active Substance: PREGABALIN
  16. FLUOXETINE [Concomitant]
     Active Substance: FLUOXETINE\FLUOXETINE HYDROCHLORIDE

REACTIONS (1)
  - Joint stiffness [Not Recovered/Not Resolved]

NARRATIVE: CASE EVENT DATE: 20140612
